FAERS Safety Report 12089170 (Version 1)
Quarter: 2016Q1

REPORT INFORMATION
  Report Type: Spontaneous
  Country: US (occurrence: None)
  Receive Date: 20160217
  Receipt Date: 20160217
  Transmission Date: 20160526
  Serious: Yes (Death)
  Sender: FDA-Public Use
  Company Number: None

PATIENT
  Age: 34 Year
  Sex: Male
  Weight: 65.77 kg

DRUGS (9)
  1. MULTIVITAMIN [Concomitant]
     Active Substance: VITAMINS
  2. PREDNISONE. [Concomitant]
     Active Substance: PREDNISONE
  3. CIPRO [Concomitant]
     Active Substance: CIPROFLOXACIN HYDROCHLORIDE
  4. AMBIEN [Concomitant]
     Active Substance: ZOLPIDEM TARTRATE
  5. TRAMADOL. [Concomitant]
     Active Substance: TRAMADOL
  6. VITAMIN D [Concomitant]
     Active Substance: CHOLECALCIFEROL
  7. FLAGYL [Concomitant]
     Active Substance: METRONIDAZOLE\METRONIDAZOLE HYDROCHLORIDE
  8. WELLBUTRIN XL [Suspect]
     Active Substance: BUPROPION HYDROCHLORIDE
     Indication: DEPRESSED MOOD
     Dates: start: 20160125, end: 20160129
  9. ENYVIO [Concomitant]

REACTIONS (1)
  - Completed suicide [None]

NARRATIVE: CASE EVENT DATE: 20160129
